FAERS Safety Report 21047738 (Version 2)
Quarter: 2022Q4

REPORT INFORMATION
  Report Type: Report from Study
  Country: FR (occurrence: FR)
  Receive Date: 20220706
  Receipt Date: 20221004
  Transmission Date: 20230113
  Serious: Yes (Hospitalization, Other)
  Sender: FDA-Public Use
  Company Number: FR-ROCHE-3009861

PATIENT
  Age: 77 Year
  Sex: Male

DRUGS (13)
  1. OXALIPLATIN [Suspect]
     Active Substance: OXALIPLATIN
     Indication: Colorectal cancer metastatic
     Dosage: 195 MG EVERY 1CYCLE
     Route: 041
     Dates: start: 20211123, end: 20220506
  2. BEVACIZUMAB [Suspect]
     Active Substance: BEVACIZUMAB
     Indication: Colorectal cancer metastatic
     Dosage: 725 MG, EVERY DAY 1 CYCLE(S)
     Route: 048
     Dates: start: 20220210, end: 20220506
  3. CAPECITABINE [Suspect]
     Active Substance: CAPECITABINE
     Indication: Colorectal cancer metastatic
     Dosage: 1500, 2000 MILLIGRAM EVERY 1 CYCLE(S)
     Route: 042
     Dates: start: 20211123, end: 20220519
  4. CAPECITABINE [Suspect]
     Active Substance: CAPECITABINE
     Dosage: 1500, 2000 MILLIGRAM EVERY 1 CYCLE(S)
     Route: 042
     Dates: start: 20211123, end: 20220519
  5. DEVICE\YTTRIUM Y-90 [Suspect]
     Active Substance: DEVICE\YTTRIUM Y-90
     Indication: Colorectal cancer metastatic
     Dosage: UNKEVERY 1 CYCLE(S) 6.5 GY
     Route: 042
     Dates: start: 20211215, end: 20220125
  6. ATEZOLIZUMAB [Suspect]
     Active Substance: ATEZOLIZUMAB
     Indication: Colorectal cancer metastatic
     Dosage: 1200 MILLIGRAM EVERY 1 CYCLE(S)
     Route: 042
     Dates: start: 20211123, end: 20220506
  7. TERBUTALINE SULFATE [Concomitant]
     Active Substance: TERBUTALINE SULFATE
     Indication: Asthma
     Dosage: 2 MG
  8. RAMIPRIL [Concomitant]
     Active Substance: RAMIPRIL
     Indication: Hypertension
     Dosage: 2.5 MG
  9. PRIMPERAN [Concomitant]
     Active Substance: METOCLOPRAMIDE HYDROCHLORIDE
     Dosage: 10 UG
     Dates: start: 20211123
  10. ALBUTEROL [Concomitant]
     Active Substance: ALBUTEROL
     Indication: Asthma
     Dosage: 400 UG
  11. FLUTICASONE PROPIONATE\SALMETEROL XINAFOATE [Concomitant]
     Active Substance: FLUTICASONE PROPIONATE\SALMETEROL XINAFOATE
     Indication: Asthma
     Dosage: 1 MG
  12. CETIRIZINE [Concomitant]
     Active Substance: CETIRIZINE HYDROCHLORIDE
     Indication: Asthma
     Dosage: 10 MG
  13. TIOTROPIUM [Concomitant]
     Active Substance: TIOTROPIUM
     Indication: Asthma
     Dosage: 18 MG

REACTIONS (3)
  - Hepatic vein occlusion [Not Recovered/Not Resolved]
  - Embolism arterial [Recovered/Resolved]
  - Soft tissue infection [Recovered/Resolved]

NARRATIVE: CASE EVENT DATE: 20220111
